FAERS Safety Report 4530427-9 (Version None)
Quarter: 2004Q4

REPORT INFORMATION
  Report Type: 
  Country: None (occurrence: None)
  Receive Date: 20041215
  Receipt Date: 20041202
  Transmission Date: 20050328
  Serious: Yes (Hospitalization, Other)
  Sender: FDA-Public Use
  Company Number: 2004094327

PATIENT
  Age: 78 Year
  Sex: Female
  Weight: 50.3493 kg

DRUGS (9)
  1. CELEBREX [Suspect]
     Indication: ARTHRALGIA
     Dosage: 400 MG (200 MG, PRN, ORAL)
     Route: 048
     Dates: start: 19991118, end: 20010101
  2. CELEBREX [Suspect]
     Indication: ARTHRITIS
     Dosage: 400 MG (200 MG, PRN, ORAL)
     Route: 048
     Dates: start: 19991118, end: 20010101
  3. ASPIRIN [Suspect]
     Indication: CORONARY ARTERY DISEASE
     Dosage: 81 MG (81 MG, 1 IN 1 D), ORAL
     Route: 048
  4. CLOPIDOGREL BISULFATE [Suspect]
     Indication: CORONARY ARTERY DISEASE
     Dosage: 75 (1 IN 1 D), ORAL
     Route: 048
     Dates: start: 20010701
  5. TOCOPHEROL CONCENTRATE CAP [Concomitant]
  6. CALCIUM (CALCIUM) [Concomitant]
  7. VITAMIN NOS (VITAMIN NOS) [Concomitant]
  8. ATORVASTATIN (ATORVASTATIN) [Concomitant]
  9. DYAZIDE (HYDROCHLOROTHIAZIDE, TRIMTERENE) [Concomitant]

REACTIONS (8)
  - ANGINA UNSTABLE [None]
  - ARTHRITIS [None]
  - BLOOD CHOLESTEROL INCREASED [None]
  - BLOOD URINE [None]
  - BODY HEIGHT DECREASED [None]
  - CONDITION AGGRAVATED [None]
  - CORONARY ARTERY DISEASE [None]
  - MYOCARDIAL INFARCTION [None]
